FAERS Safety Report 6275892-4 (Version None)
Quarter: 2009Q3

REPORT INFORMATION
  Report Type: 
  Country: None (occurrence: None)
  Receive Date: 20090720
  Receipt Date: 20090709
  Transmission Date: 20100115
  Serious: Yes (Hospitalization, Other)
  Sender: FDA-Public Use
  Company Number: 2009-00700

PATIENT
  Age: 38 Year
  Sex: Female
  Weight: 63 kg

DRUGS (11)
  1. VELCADE [Suspect]
     Indication: AMYLOIDOSIS
     Dosage: 1.3 MG/M2, IV BOLUS
     Route: 040
     Dates: start: 20071207, end: 20080104
  2. DEXAMETHASONE TAB [Suspect]
     Indication: AMYLOIDOSIS
     Dosage: 20 MG, ORAL
     Route: 048
     Dates: start: 20071207, end: 20080104
  3. MELPHALAN(MELPHALAN) VIAL [Suspect]
     Indication: AMYLOIDOSIS
     Dosage: 70 MG/M2
     Dates: start: 20070918, end: 20070919
  4. FLUCONAZOLE [Concomitant]
  5. PYRIDOXINE (PYRIDOXINE) [Concomitant]
  6. ACYCLOVIR [Concomitant]
  7. OMEPRAZOLE [Concomitant]
  8. METOPROLOL SUCCINATE [Concomitant]
  9. TORSEMIDE (TORSEMIDE) [Concomitant]
  10. INSPRA [Concomitant]
  11. WARFARIN SODIUM [Concomitant]

REACTIONS (26)
  - ABDOMINAL DISCOMFORT [None]
  - BLOOD URINE PRESENT [None]
  - CHEST DISCOMFORT [None]
  - CHEST PAIN [None]
  - COAGULOPATHY [None]
  - ELECTROCARDIOGRAM POOR R-WAVE PROGRESSION [None]
  - ELECTROCARDIOGRAM QRS COMPLEX ABNORMAL [None]
  - GASTROINTESTINAL HAEMORRHAGE [None]
  - HAEMATOCHEZIA [None]
  - HAEMATOCRIT DECREASED [None]
  - HAEMORRHOIDS [None]
  - HEADACHE [None]
  - HEART RATE INCREASED [None]
  - HYPOAESTHESIA [None]
  - HYPOKALAEMIA [None]
  - INTERNATIONAL NORMALISED RATIO INCREASED [None]
  - LOWER RESPIRATORY TRACT INFLAMMATION [None]
  - LUNG INFECTION [None]
  - LUNG INFILTRATION [None]
  - MUSCLE TIGHTNESS [None]
  - PLEURAL EFFUSION [None]
  - PNEUMONIA FUNGAL [None]
  - PROTHROMBIN TIME PROLONGED [None]
  - PULMONARY HAEMORRHAGE [None]
  - RESPIRATORY TRACT HAEMORRHAGE [None]
  - THROMBOCYTOPENIA [None]
